FAERS Safety Report 11736780 (Version 1)
Quarter: 2015Q4

REPORT INFORMATION
  Report Type: Spontaneous
  Country: US (occurrence: US)
  Receive Date: 20151113
  Receipt Date: 20151113
  Transmission Date: 20160304
  Serious: No
  Sender: FDA-Public Use
  Company Number: US-JNJFOC-20151105241

PATIENT
  Sex: Female

DRUGS (2)
  1. IMODIUM A-D [Suspect]
     Active Substance: LOPERAMIDE HYDROCHLORIDE
     Route: 048
  2. IMODIUM A-D [Suspect]
     Active Substance: LOPERAMIDE HYDROCHLORIDE
     Indication: FREQUENT BOWEL MOVEMENTS
     Dosage: 30ML FOR THE FIRST DOSE, AND 15ML FOR SECOND DOSE
     Route: 048

REACTIONS (3)
  - Off label use [Unknown]
  - Incorrect dose administered [Unknown]
  - Product use issue [Unknown]
